FAERS Safety Report 5329992-3 (Version None)
Quarter: 2007Q2

REPORT INFORMATION
  Report Type: 
  Country: None (occurrence: None)
  Receive Date: 20070521
  Receipt Date: 20070518
  Transmission Date: 20071010
  Serious: Yes (Hospitalization)
  Sender: FDA-Public Use
  Company Number: A0651981A

PATIENT
  Age: 66 Year
  Sex: Female

DRUGS (4)
  1. AMOXICILLIN [Suspect]
     Indication: WOUND INFECTION
     Dates: start: 20070401, end: 20070401
  2. LEVAQUIN [Suspect]
     Indication: WOUND INFECTION
     Dates: start: 20070401
  3. BIBR 1048 [Suspect]
     Dates: start: 20070404, end: 20070428
  4. CHEMOTHERAPY [Suspect]
     Indication: ENDOMETRIAL CANCER

REACTIONS (4)
  - ANAEMIA [None]
  - DYSPNOEA [None]
  - RENAL FAILURE [None]
  - WEIGHT INCREASED [None]
